FAERS Safety Report 16788896 (Version 2)
Quarter: 2019Q4

REPORT INFORMATION
  Report Type: Spontaneous
  Country: FR (occurrence: FR)
  Receive Date: 20190910
  Receipt Date: 20191218
  Transmission Date: 20200122
  Serious: Yes (Disabling)
  Sender: FDA-Public Use
  Company Number: FR-TEVA-2019-FR-1103660

PATIENT
  Age: 84 Year
  Sex: Female
  Weight: 52 kg

DRUGS (12)
  1. KARDEGIC [Suspect]
     Active Substance: ASPIRIN DL-LYSINE
     Indication: PROPHYLAXIS
     Dosage: 1 DOSAGE FORMS
     Route: 048
     Dates: end: 20190817
  2. ENOXAPARINE SODIQUE ((MAMMIFERE/PORC/MUQUEUSE INTESTINALE)) [Suspect]
     Active Substance: ENOXAPARIN SODIUM
     Indication: PROPHYLAXIS
     Dosage: 4000 IU
     Route: 058
     Dates: start: 20190817, end: 20190817
  3. NAFTIDROFURYL [Concomitant]
     Active Substance: NAFRONYL
     Dosage: 600 MILLIGRAM
  4. PANTOPRAZOLE [Concomitant]
     Active Substance: PANTOPRAZOLE
     Dosage: 80 MILLIGRAM
  5. ATORVASTATINE [Concomitant]
     Active Substance: ATORVASTATIN
     Dosage: 40 MILLIGRAM
  6. AMOXICILLINE [Concomitant]
     Active Substance: AMOXICILLIN
     Indication: BACTERAEMIA
     Route: 042
     Dates: start: 20190816, end: 20190829
  7. PREDNISONE. [Concomitant]
     Active Substance: PREDNISONE
     Dosage: 4 MILLIGRAM
  8. CLOPIDOGREL (HYDROGENOSULFATE DE) [Suspect]
     Active Substance: CLOPIDOGREL BISULFATE
     Indication: PROPHYLAXIS
     Dosage: 75 MILLIGRAM
     Route: 048
     Dates: end: 20190817
  9. PARACETAMOL [Concomitant]
     Active Substance: ACETAMINOPHEN
     Dosage: 3000 MILLIGRAM
  10. CALCIUM (CARBONATE DE) [Concomitant]
     Active Substance: CALCIUM CARBONATE
     Dosage: 1800 MILLIGRAM
  11. LACTULOSE. [Concomitant]
     Active Substance: LACTULOSE
     Dosage: 2 DOSAGE FORMS
  12. GENTAMICINE [Concomitant]
     Active Substance: GENTAMICIN
     Indication: BACTERAEMIA
     Route: 042
     Dates: start: 20190816

REACTIONS (2)
  - Paraplegia [Not Recovered/Not Resolved]
  - Spinal subdural haematoma [Not Recovered/Not Resolved]

NARRATIVE: CASE EVENT DATE: 20190818
